FAERS Safety Report 11717573 (Version 1)
Quarter: 2015Q4

REPORT INFORMATION
  Report Type: Spontaneous
  Country: US (occurrence: US)
  Receive Date: 20151110
  Receipt Date: 20151110
  Transmission Date: 20160304
  Serious: Yes (Death)
  Sender: FDA-Public Use
  Company Number: US-ASTRAZENECA-2015SF07226

PATIENT
  Age: 137 Day
  Sex: Male
  Weight: 4.5 kg

DRUGS (1)
  1. SYNAGIS [Suspect]
     Active Substance: PALIVIZUMAB
     Indication: RESPIRATORY DISORDER NEONATAL
     Route: 030
     Dates: start: 20151029

REACTIONS (3)
  - Death [Fatal]
  - Benign congenital hypotonia [Unknown]
  - Product use issue [Unknown]

NARRATIVE: CASE EVENT DATE: 20151102
